FAERS Safety Report 8988603 (Version 1)
Quarter: 2012Q4

REPORT INFORMATION
  Report Type: 
  Country: FR (occurrence: FR)
  Receive Date: 20121228
  Receipt Date: 20121228
  Transmission Date: 20130627
  Serious: Yes (Hospitalization, Other)
  Sender: FDA-Public Use
  Company Number: FR-PFIZER INC-2012328532

PATIENT
  Age: 92 Year
  Sex: Female

DRUGS (13)
  1. CORDARONE [Suspect]
     Indication: ARRHYTHMIA
     Dosage: 200 mg, daily
     Route: 048
     Dates: start: 20120704, end: 20120911
  2. CALTRATE WITH VITAMIN D [Concomitant]
  3. CITALOPRAM [Concomitant]
  4. COUMADINE [Concomitant]
  5. DIFFU K [Concomitant]
  6. FORLAX [Concomitant]
  7. FOSINOPRIL [Concomitant]
  8. LASILIX [Concomitant]
     Dosage: increased by 20 mg
  9. SERESTA [Concomitant]
  10. CONTRAMAL [Concomitant]
  11. DOLIPRANE [Concomitant]
  12. IMODIUM [Concomitant]
  13. DICLOFENAC [Concomitant]

REACTIONS (4)
  - Interstitial lung disease [Not Recovered/Not Resolved]
  - Cardiac failure [Unknown]
  - Cholestasis [Unknown]
  - Atrial fibrillation [Unknown]
